FAERS Safety Report 5901032-4 (Version None)
Quarter: 2008Q3

REPORT INFORMATION
  Report Type: 
  Country: None (occurrence: None)
  Receive Date: 20080929
  Receipt Date: 20080918
  Transmission Date: 20090109
  Serious: Yes (Other)
  Sender: FDA-Public Use
  Company Number: US-ROCHE-582130

PATIENT
  Sex: Male
  Weight: 75.3 kg

DRUGS (3)
  1. CAPECITABINE [Suspect]
     Dosage: 500 MG IN AM AND 500 MG IN PM, 5 DAYS ON AND 2 DAYS OFF
     Route: 048
     Dates: start: 20080603, end: 20080901
  2. GEMZAR [Concomitant]
     Dosage: FRQUENCY REPORTED AS D1/ 8
     Route: 042
     Dates: start: 20080603, end: 20080901
  3. TARCEVA [Concomitant]

REACTIONS (1)
  - DISEASE PROGRESSION [None]
